FAERS Safety Report 9917979 (Version 1)
Quarter: 2014Q1

REPORT INFORMATION
  Report Type: Report from Study
  Country: IL (occurrence: IL)
  Receive Date: 20140222
  Receipt Date: 20140222
  Transmission Date: 20141002
  Serious: Yes (Other)
  Sender: FDA-Public Use
  Company Number: PHHY2014IL021099

PATIENT
  Age: 69 Year
  Sex: Male

DRUGS (2)
  1. SANDOSTATIN LAR [Suspect]
     Indication: CARCINOID TUMOUR
     Dosage: 30 MG, Q4W
     Route: 030
     Dates: start: 20121224
  2. SANDOSTATIN LAR [Suspect]
     Dosage: 30 MG, Q4W
     Route: 030
     Dates: start: 20140218

REACTIONS (3)
  - Prostate cancer [Not Recovered/Not Resolved]
  - Prostatomegaly [Unknown]
  - Second primary malignancy [Unknown]
